FAERS Safety Report 7678805-3 (Version None)
Quarter: 2011Q3

REPORT INFORMATION
  Report Type: 
  Country: None (occurrence: None)
  Receive Date: 20110811
  Receipt Date: 20110802
  Transmission Date: 20111222
  Serious: Yes (Hospitalization, Other)
  Sender: FDA-Public Use
  Company Number: US-ASTRAZENECA-2010SE48550

PATIENT
  Age: 53 Year
  Sex: Male
  Weight: 83.9 kg

DRUGS (10)
  1. PLAVIX [Concomitant]
  2. AVALIDE [Concomitant]
     Dosage: 300/12.5 MG EVERY DAY
  3. CRESTOR [Suspect]
     Route: 048
  4. AVAPRO [Concomitant]
  5. ZETIA [Concomitant]
  6. CRESTOR [Suspect]
     Route: 048
  7. CRESTOR [Suspect]
     Route: 048
  8. LASIX [Concomitant]
  9. VALIUM [Concomitant]
  10. BYSTOLIC [Concomitant]

REACTIONS (19)
  - STENT PLACEMENT [None]
  - CORONARY ARTERY DISEASE [None]
  - MYOCARDIAL INFARCTION [None]
  - NEUROFIBROMATOSIS [None]
  - ASTHMA [None]
  - DYSLEXIA [None]
  - CAROTID ARTERY STENOSIS [None]
  - ARTERIAL OCCLUSIVE DISEASE [None]
  - HYPERLIPIDAEMIA [None]
  - CORONARY ARTERIAL STENT INSERTION [None]
  - BACK PAIN [None]
  - PANIC ATTACK [None]
  - CEREBROVASCULAR DISORDER [None]
  - FALL [None]
  - ROTATOR CUFF SYNDROME [None]
  - CORONARY ARTERY OCCLUSION [None]
  - DYSURIA [None]
  - HYPERTENSION [None]
  - HYPOTENSION [None]
